FAERS Safety Report 12009983 (Version 1)
Quarter: 2016Q1

REPORT INFORMATION
  Report Type: Report from Study
  Country: BR (occurrence: BR)
  Receive Date: 20160205
  Receipt Date: 20160205
  Transmission Date: 20160526
  Serious: Yes (Hospitalization, Other)
  Sender: FDA-Public Use
  Company Number: BR-UCBSA-2015004347

PATIENT
  Age: 45 Year
  Sex: Male
  Weight: 78 kg

DRUGS (7)
  1. INSULIN [Concomitant]
     Active Substance: INSULIN NOS
     Indication: DIABETES MELLITUS
     Dosage: 10 IU, 3X/DAY (TID)
     Route: 058
     Dates: start: 2012
  2. NPH INSULIN [Concomitant]
     Active Substance: INSULIN BEEF
     Dosage: 24 IU, ONCE DAILY (QD)
     Route: 058
     Dates: start: 2006
  3. CERTOLIZUMAB PEGOL [Suspect]
     Active Substance: CERTOLIZUMAB PEGOL
     Indication: RHEUMATOID ARTHRITIS
     Dosage: 200 MG, EV 4 WEEKS
     Route: 058
     Dates: start: 20141010
  4. NPH INSULIN [Concomitant]
     Active Substance: INSULIN BEEF
     Indication: DIABETES MELLITUS
     Dosage: 35 IU, ONCE DAILY (QD)
     Route: 058
     Dates: start: 2006
  5. PREDNISON [Concomitant]
     Active Substance: PREDNISONE
     Indication: RHEUMATOID ARTHRITIS
     Dosage: 5 MG, 3X/DAY (TID)
     Route: 048
     Dates: start: 2004
  6. DICLOFENAC [Concomitant]
     Active Substance: DICLOFENAC
     Indication: PAIN
     Dosage: UNK
     Route: 048
     Dates: start: 2004
  7. OMEPRAZOL [Concomitant]
     Active Substance: OMEPRAZOLE
     Indication: GASTRITIS
     Dosage: 20 MG, 2X/DAY (BID)
     Route: 048
     Dates: start: 2010

REACTIONS (10)
  - Asthenia [Unknown]
  - Neck pain [Unknown]
  - Arthralgia [Unknown]
  - Pain in extremity [Unknown]
  - Gait disturbance [Unknown]
  - Peripheral swelling [Unknown]
  - Drug dose omission [Unknown]
  - Musculoskeletal pain [Unknown]
  - Diabetes mellitus [Unknown]
  - Back pain [Unknown]

NARRATIVE: CASE EVENT DATE: 2014
